FAERS Safety Report 8288543-4 (Version None)
Quarter: 2012Q2

REPORT INFORMATION
  Report Type: 
  Country: None (occurrence: None)
  Receive Date: 20120416
  Receipt Date: 20120322
  Transmission Date: 20120825
  Serious: Yes (Hospitalization)
  Sender: FDA-Public Use
  Company Number: IE-BAXTER-2012BAX000666

PATIENT
  Sex: Female

DRUGS (15)
  1. METFORMIN HCL [Concomitant]
     Indication: TYPE 2 DIABETES MELLITUS
     Route: 048
  2. COZAAR [Concomitant]
     Route: 048
  3. CETIRIZINE HCL [Concomitant]
     Route: 048
  4. PARAFFIN SOLUTION [Concomitant]
     Route: 061
  5. BETNOVATE CREAM [Concomitant]
     Route: 061
  6. BISOPROLOL [Concomitant]
     Route: 048
  7. CALCICHEW D3 FORTE [Concomitant]
     Route: 048
  8. PREDNISOLONE [Concomitant]
     Route: 048
  9. SODIUM CHLORIDE INJECTION 0.9% W/V [Suspect]
     Indication: INFECTION
     Route: 042
     Dates: start: 20120320
  10. OMEPRAZOLE [Concomitant]
     Route: 048
  11. TRAMADOL HCL [Concomitant]
     Route: 048
  12. AQUEOUS CREAM [Concomitant]
     Route: 061
  13. CEFTRIAXONE [Suspect]
     Indication: INFECTION
     Route: 042
     Dates: start: 20120320
  14. E45 CREAM [Concomitant]
     Route: 061
  15. ALLOPURINOL [Concomitant]
     Route: 048

REACTIONS (5)
  - PALPITATIONS [None]
  - ASTHENIA [None]
  - FATIGUE [None]
  - HEART RATE IRREGULAR [None]
  - ARTHRALGIA [None]
